FAERS Safety Report 5455606-8 (Version None)
Quarter: 2007Q3

REPORT INFORMATION
  Report Type: 
  Country: None (occurrence: None)
  Receive Date: 20070918
  Receipt Date: 20070906
  Transmission Date: 20080115
  Serious: Yes (Hospitalization)
  Sender: FDA-Public Use
  Company Number: US-AMGEN-KDL238051

PATIENT
  Sex: Male
  Weight: 91.3 kg

DRUGS (15)
  1. ENBREL [Suspect]
     Indication: RHEUMATOID ARTHRITIS
     Route: 058
     Dates: start: 20030823, end: 20070801
  2. AZULFIDINE [Concomitant]
  3. TYLENOL W/ CODEINE NO. 4 [Concomitant]
  4. FLOMAX [Concomitant]
     Dates: end: 20050101
  5. FOSAMAX [Concomitant]
     Dates: end: 20050419
  6. ARAVA [Concomitant]
  7. ZYRTEC [Concomitant]
  8. BENICAR [Concomitant]
  9. LASIX [Concomitant]
     Dates: end: 20060614
  10. TENORMIN [Concomitant]
     Dates: end: 20050608
  11. ATENOLOL [Concomitant]
     Dates: start: 20050608
  12. ALTACE [Concomitant]
     Dates: start: 20050101
  13. AMBIEN [Concomitant]
     Dates: start: 20050101
  14. NEXIUM [Concomitant]
  15. ADVAIR DISKUS 100/50 [Concomitant]

REACTIONS (6)
  - BRONCHITIS [None]
  - INTERSTITIAL LUNG DISEASE [None]
  - PLEURAL EFFUSION [None]
  - RENAL CYST [None]
  - SPINAL OSTEOARTHRITIS [None]
  - SUBCUTANEOUS NODULE [None]
